FAERS Safety Report 15738218 (Version 1)
Quarter: 2018Q4

REPORT INFORMATION
  Report Type: Spontaneous
  Country: CA (occurrence: CA)
  Receive Date: 20181219
  Receipt Date: 20181219
  Transmission Date: 20190205
  Serious: Yes (Other)
  Sender: FDA-Public Use
  Company Number: CA-TEVA-2018-CA-990962

PATIENT
  Sex: Male

DRUGS (26)
  1. RISPERIDONE. [Suspect]
     Active Substance: RISPERIDONE
     Dosage: 3 MILLIGRAM DAILY;
     Route: 065
  2. PERPHENAZINE. [Concomitant]
     Active Substance: PERPHENAZINE
  3. FLUOXETINE [Concomitant]
     Active Substance: FLUOXETINE HYDROCHLORIDE
  4. THIORIDAZINE [Concomitant]
     Active Substance: THIORIDAZINE
  5. LITHIUM. [Suspect]
     Active Substance: LITHIUM
     Dosage: 1050 MILLIGRAM DAILY;
     Route: 065
  6. GABAPENTIN. [Concomitant]
     Active Substance: GABAPENTIN
  7. OLANZAPINE. [Suspect]
     Active Substance: OLANZAPINE
     Dosage: 15 MILLIGRAM DAILY;
     Route: 065
  8. FLUPENTIXOL [Concomitant]
     Active Substance: FLUPENTIXOL
  9. SAPHRIS [Concomitant]
     Active Substance: ASENAPINE MALEATE
  10. TRIFLUOPERAZINE TAB 5 MG [Concomitant]
  11. VALPROATE [Concomitant]
     Active Substance: VALPROIC ACID
  12. OLANZAPINE. [Suspect]
     Active Substance: OLANZAPINE
     Dosage: 40 MILLIGRAM DAILY;
     Route: 065
  13. ABILIFY [Concomitant]
     Active Substance: ARIPIPRAZOLE
  14. CITALOPRAM [Concomitant]
     Active Substance: CITALOPRAM HYDROBROMIDE
  15. CLOMIPRAMINE [Concomitant]
     Active Substance: CLOMIPRAMINE
  16. HALOPERIDOL. [Concomitant]
     Active Substance: HALOPERIDOL
  17. LOXAPINE. [Concomitant]
     Active Substance: LOXAPINE
  18. RISPERIDONE. [Suspect]
     Active Substance: RISPERIDONE
     Indication: PSYCHOTIC DISORDER
     Dosage: 4 MILLIGRAM DAILY;
     Route: 065
  19. CLOZAPINE. [Suspect]
     Active Substance: CLOZAPINE
     Indication: PSYCHOTIC DISORDER
     Dosage: 350 MILLIGRAM DAILY;
     Route: 065
  20. LITHIUM. [Suspect]
     Active Substance: LITHIUM
     Dosage: 1800 MILLIGRAM DAILY;
     Route: 065
  21. AMISULPRIDE [Concomitant]
     Active Substance: AMISULPRIDE
  22. ZELDOX [Concomitant]
     Active Substance: ZIPRASIDONE
  23. OLANZAPINE. [Suspect]
     Active Substance: OLANZAPINE
     Indication: PSYCHOTIC DISORDER
     Dosage: 20 MILLIGRAM DAILY;
     Route: 065
  24. RISPERIDONE. [Suspect]
     Active Substance: RISPERIDONE
     Dosage: 8 MILLIGRAM DAILY;
     Route: 065
  25. LITHIUM. [Suspect]
     Active Substance: LITHIUM
     Indication: AFFECTIVE DISORDER
     Dosage: 2400 MILLIGRAM DAILY;
     Route: 065
  26. QUETIAPINE. [Concomitant]
     Active Substance: QUETIAPINE

REACTIONS (6)
  - Dyslipidaemia [Unknown]
  - Hypertension [Unknown]
  - Obesity [Unknown]
  - Obsessive-compulsive disorder [Unknown]
  - Drug ineffective [Unknown]
  - Leukopenia [Unknown]
